FAERS Safety Report 21858014 (Version 3)
Quarter: 2023Q1

REPORT INFORMATION
  Report Type: Report from Study
  Country: US (occurrence: US)
  Receive Date: 20230113
  Receipt Date: 20230120
  Transmission Date: 20230417
  Serious: Yes (Other)
  Sender: FDA-Public Use
  Company Number: US-002147023-NVSC2023US005862

PATIENT
  Sex: Female

DRUGS (1)
  1. GLEEVEC [Suspect]
     Active Substance: IMATINIB MESYLATE
     Indication: Product used for unknown indication
     Dosage: UNK
     Route: 065

REACTIONS (8)
  - Chronic myeloid leukaemia [Unknown]
  - Panic attack [Unknown]
  - Hypogeusia [Unknown]
  - Hyperhidrosis [Unknown]
  - Pigmentation disorder [Unknown]
  - Photosensitivity reaction [Unknown]
  - Tremor [Unknown]
  - Fatigue [Unknown]
